FAERS Safety Report 4851768-1 (Version None)
Quarter: 2005Q4

REPORT INFORMATION
  Report Type: 
  Country: None (occurrence: None)
  Receive Date: 20051209
  Receipt Date: 20051209
  Transmission Date: 20060501
  Serious: Yes (Other)
  Sender: FDA-Public Use
  Company Number: None

PATIENT
  Age: 62 Year
  Sex: Male
  Weight: 72.5755 kg

DRUGS (1)
  1. EFUDEX [Suspect]
     Indication: ACTINIC KERATOSIS
     Dosage: 5% 40 GM BID TOPICAL
     Route: 061
     Dates: start: 20050915, end: 20051005

REACTIONS (3)
  - INFECTION [None]
  - SKIN FISSURES [None]
  - SKIN ULCER [None]
